FAERS Safety Report 12774828 (Version 1)
Quarter: 2016Q3

REPORT INFORMATION
  Report Type: Spontaneous
  Country: US (occurrence: US)
  Receive Date: 20160923
  Receipt Date: 20160923
  Transmission Date: 20161109
  Serious: No
  Sender: FDA-Public Use
  Company Number: US-GLAXOSMITHKLINE-US2016137884

PATIENT
  Age: 72 Year
  Sex: Female

DRUGS (6)
  1. WELLBUTRIN SR [Suspect]
     Active Substance: BUPROPION HYDROCHLORIDE
     Indication: DEPRESSION
     Dosage: 100 MG, BID
     Route: 048
     Dates: start: 20160830, end: 201609
  2. ZYRTEC [Concomitant]
     Active Substance: CETIRIZINE HYDROCHLORIDE
  3. GYMNEMA SYLVESTRE [Concomitant]
  4. DICYCLOMINE HYDROCHLORIDE. [Concomitant]
     Active Substance: DICYCLOMINE HYDROCHLORIDE
  5. FISH OIL [Concomitant]
     Active Substance: FISH OIL
  6. ASPIRIN (BABY) [Concomitant]
     Active Substance: ASPIRIN

REACTIONS (12)
  - Gingival bleeding [Recovering/Resolving]
  - Feeling jittery [Recovering/Resolving]
  - Skin discolouration [Recovering/Resolving]
  - Pruritus [Recovering/Resolving]
  - Burning sensation [Recovering/Resolving]
  - Nervousness [Recovering/Resolving]
  - Rash macular [Recovering/Resolving]
  - Tongue ulceration [Recovering/Resolving]
  - Pain [Recovering/Resolving]
  - Oropharyngeal pain [Recovering/Resolving]
  - Headache [Recovering/Resolving]
  - Skin exfoliation [Recovering/Resolving]

NARRATIVE: CASE EVENT DATE: 201609
